FAERS Safety Report 7142366-8 (Version None)
Quarter: 2010Q4

REPORT INFORMATION
  Report Type: 
  Country: None (occurrence: None)
  Receive Date: 20101207
  Receipt Date: 20101201
  Transmission Date: 20110411
  Serious: Yes (Life-Threatening, Hospitalization, Other)
  Sender: FDA-Public Use
  Company Number: US-ROXANE LABORATORIES, INC.-2010-RO-01565RO

PATIENT
  Age: 25 Year
  Sex: Female

DRUGS (2)
  1. AMLODIPINE [Suspect]
  2. CALCIUM GLUCONATE [Suspect]

REACTIONS (3)
  - DRUG INEFFECTIVE [None]
  - OVERDOSE [None]
  - SHOCK [None]
